FAERS Safety Report 10035942 (Version 2)
Quarter: 2014Q1

REPORT INFORMATION
  Report Type: Spontaneous
  Country: US (occurrence: US)
  Receive Date: 20140325
  Receipt Date: 20140325
  Transmission Date: 20141002
  Serious: Yes (Other)
  Sender: FDA-Public Use
  Company Number: US-GE HEALTHCARE MEDICAL DIAGNOSTICS-OSCN-PR-0806S-0373

PATIENT
  Sex: Male

DRUGS (10)
  1. GADOLINIUM (UNSPECIFIED) [Suspect]
     Indication: INJURY
     Dates: start: 19990415, end: 19990415
  2. PROHANCE [Suspect]
     Indication: ABDOMINAL PAIN UPPER
     Route: 042
     Dates: start: 20070502, end: 20070502
  3. PROHANCE [Suspect]
     Indication: WEIGHT DECREASED
  4. NITROGLYCERIN [Concomitant]
  5. VICODIN [Concomitant]
  6. FENTANYL [Concomitant]
  7. VYTORIN [Concomitant]
  8. ZOCOR [Concomitant]
  9. CLINDAMYCIN [Concomitant]
  10. KADIAN [Concomitant]

REACTIONS (1)
  - Nephrogenic systemic fibrosis [Not Recovered/Not Resolved]
